FAERS Safety Report 20355315 (Version 1)
Quarter: 2022Q1

REPORT INFORMATION
  Report Type: Spontaneous
  Country: NL (occurrence: NL)
  Receive Date: 20220120
  Receipt Date: 20220120
  Transmission Date: 20220424
  Serious: Yes (Hospitalization)
  Sender: FDA-Public Use
  Company Number: NL-TEVA-2022-NL-1998976

PATIENT
  Age: 65 Year
  Sex: Male

DRUGS (1)
  1. PREDNISOLONE [Suspect]
     Active Substance: PREDNISOLONE
     Indication: COVID-19 pneumonia
     Dosage: 120 MILLIGRAM DAILY; ON DAY 22, HE STARTED RECEIVING PREDNISOLONE 120 MG/DAY FOR 5 DAYS, WHICH WAS T
     Route: 065

REACTIONS (2)
  - Rectal perforation [Recovering/Resolving]
  - Perirectal abscess [Recovering/Resolving]
